FAERS Safety Report 4845895-2 (Version None)
Quarter: 2005Q4

REPORT INFORMATION
  Report Type: 
  Country: None (occurrence: None)
  Receive Date: 20051130
  Receipt Date: 20051123
  Transmission Date: 20060501
  Serious: Yes (Death)
  Sender: FDA-Public Use
  Company Number: IMP_1932_2005

PATIENT
  Age: 49 Year
  Sex: Male

DRUGS (3)
  1. BUPROPION [Suspect]
     Indication: ANXIETY
     Dosage: 150 MG QDAY
     Dates: start: 20051030
  2. BUPROPION [Suspect]
     Indication: DEPRESSION
     Dosage: 150 MG QDAY
     Dates: start: 20051030
  3. MINOCYCLINE [Concomitant]

REACTIONS (4)
  - COMPLETED SUICIDE [None]
  - GUN SHOT WOUND [None]
  - NONSPECIFIC REACTION [None]
  - OBSESSIVE-COMPULSIVE DISORDER [None]
